FAERS Safety Report 5942193-0 (Version None)
Quarter: 2008Q4

REPORT INFORMATION
  Report Type: 
  Country: None (occurrence: None)
  Receive Date: 20081031
  Receipt Date: 20081020
  Transmission Date: 20090506
  Serious: Yes (Life-Threatening, Hospitalization)
  Sender: FDA-Public Use
  Company Number: WAES 0806USA08291

PATIENT
  Age: 82 Year
  Sex: Male
  Weight: 107.5025 kg

DRUGS (19)
  1. CAP VORINOSTAT UNK [Suspect]
     Indication: ACUTE MYELOID LEUKAEMIA
     Dosage: 400 MG/DAILY/PO
     Route: 048
     Dates: start: 20080504, end: 20080517
  2. CAP VORINOSTAT UNK [Suspect]
     Indication: ACUTE MYELOID LEUKAEMIA
     Dosage: 400 MG/DAILY/PO
     Route: 048
     Dates: start: 20080614, end: 20080706
  3. DECITABINE UNK [Suspect]
     Indication: ACUTE MYELOID LEUKAEMIA
     Dosage: 200 MG/M[2]/1X/IV
     Route: 042
     Dates: start: 20080429, end: 20080503
  4. DECITABINE UNK [Suspect]
     Indication: ACUTE MYELOID LEUKAEMIA
     Dosage: 200 MG/M[2]/1X/IV
     Route: 042
     Dates: start: 20080609, end: 20080613
  5. COUMADIN [Concomitant]
  6. LOVENOX [Concomitant]
  7. NORVASC [Concomitant]
  8. PROTONIX [Concomitant]
  9. VICODIN [Concomitant]
  10. ACYCLOVIR [Concomitant]
  11. ITRACONAZOLE [Concomitant]
  12. LEVOFLOXACIN [Concomitant]
  13. METRONIDAZOLE [Concomitant]
  14. NYSTATIN [Concomitant]
  15. POTASSIUM CHLORIDE (+) SOIDUM CHLORIDE [Concomitant]
  16. ROPINIROLE [Concomitant]
  17. SODIUM BICARBONATE (+) SODIUM CHLORIDE [Concomitant]
  18. SODIUM CHLORIDE 0.9% [Concomitant]
  19. VITAMINS (UNSPECIFIED) [Concomitant]

REACTIONS (13)
  - ASTHENIA [None]
  - CHILLS [None]
  - CLOSTRIDIAL INFECTION [None]
  - COUGH [None]
  - DIARRHOEA [None]
  - ENTEROCOCCAL BACTERAEMIA [None]
  - FATIGUE [None]
  - FEBRILE NEUTROPENIA [None]
  - HYPERHIDROSIS [None]
  - OROPHARYNGEAL PAIN [None]
  - PLEURITIC PAIN [None]
  - RETCHING [None]
  - THROMBOCYTOPENIA [None]
